FAERS Safety Report 9685785 (Version 5)
Quarter: 2014Q3

REPORT INFORMATION
  Report Type: Report from Study
  Country: JP (occurrence: JP)
  Receive Date: 20131113
  Receipt Date: 20140716
  Transmission Date: 20150326
  Serious: Yes (Hospitalization)
  Sender: FDA-Public Use
  Company Number: JP-009507513-1310JPN008450

PATIENT
  Age: 4 Month
  Sex: Male

DRUGS (18)
  1. DIAZOXIDE CAPSULES 25 MG ^MSD^ [Suspect]
     Active Substance: DIAZOXIDE
     Dosage: 12.8 MG/KG, QD
     Route: 048
  2. DIAZOXIDE CAPSULES 25 MG ^MSD^ [Suspect]
     Active Substance: DIAZOXIDE
     Dosage: 17.5 MG, TID
     Route: 048
     Dates: start: 20131028, end: 20131028
  3. LASIX [Concomitant]
     Active Substance: FUROSEMIDE
     Indication: PROPHYLAXIS
     Dosage: DAILY DOSAGE UNKNOWN; FORMULATION POR
     Route: 048
     Dates: start: 20130621, end: 201312
  4. INCREMIN [Concomitant]
     Dosage: DAILY DOSAGE UNKNOWN
     Route: 065
  5. DIAZOXIDE CAPSULES 25 MG ^MSD^ [Suspect]
     Active Substance: DIAZOXIDE
     Dosage: 30.8 MG, TID
     Route: 048
     Dates: start: 20131017, end: 20131020
  6. ALDACTONE [Concomitant]
     Active Substance: SPIRONOLACTONE
     Indication: PROPHYLAXIS
     Dosage: DAILY DOSAGE UNKNOWN; FORMULATION POR
     Route: 048
     Dates: start: 20130621, end: 201312
  7. DIAZOXIDE CAPSULES 25 MG ^MSD^ [Suspect]
     Active Substance: DIAZOXIDE
     Dosage: 22.5 MG,TID
     Route: 048
     Dates: start: 20130805, end: 20130926
  8. DIAZOXIDE CAPSULES 25 MG ^MSD^ [Suspect]
     Active Substance: DIAZOXIDE
     Dosage: 16.66 MG TID
     Route: 048
     Dates: start: 20130628, end: 20130804
  9. DIAZOXIDE CAPSULES 25 MG ^MSD^ [Suspect]
     Active Substance: DIAZOXIDE
     Dosage: 37.5 MG,TID
     Route: 048
     Dates: start: 20130927, end: 20131014
  10. DIAZOXIDE CAPSULES 25 MG ^MSD^ [Suspect]
     Active Substance: DIAZOXIDE
     Dosage: 10.8 MG, TID
     Route: 048
     Dates: start: 20131029, end: 20131031
  11. DIAZOXIDE CAPSULES 25 MG ^MSD^ [Suspect]
     Active Substance: DIAZOXIDE
     Dosage: 24.1 MG, TID
     Route: 048
     Dates: start: 20131023, end: 20131024
  12. DIAZOXIDE CAPSULES 25 MG ^MSD^ [Suspect]
     Active Substance: DIAZOXIDE
     Dosage: 20.8 MG,TID
     Route: 048
     Dates: start: 20131025, end: 20131027
  13. DIAZOXIDE CAPSULES 25 MG ^MSD^ [Suspect]
     Active Substance: DIAZOXIDE
     Indication: HYPOGLYCAEMIA
     Dosage: 8.33 MG, TID
     Route: 048
     Dates: start: 20130621, end: 20130624
  14. DIAZOXIDE CAPSULES 25 MG ^MSD^ [Suspect]
     Active Substance: DIAZOXIDE
     Dosage: 13.33 MG,TID
     Route: 048
     Dates: start: 20130625, end: 20130627
  15. DIAZOXIDE CAPSULES 25 MG ^MSD^ [Suspect]
     Active Substance: DIAZOXIDE
     Dosage: 34.1 MG,TID
     Route: 048
     Dates: start: 20131015, end: 20131016
  16. DIAZOXIDE CAPSULES 25 MG ^MSD^ [Suspect]
     Active Substance: DIAZOXIDE
     Dosage: 27.5 MG, TID
     Route: 048
     Dates: start: 20131021, end: 20131022
  17. L CARTIN [Concomitant]
     Indication: HYPOCARNITINAEMIA
     Dosage: DAILY DOSAGE UNKNOWN
     Route: 048
     Dates: start: 20130705, end: 201312
  18. DIAZOXIDE CAPSULES 25 MG ^MSD^ [Suspect]
     Active Substance: DIAZOXIDE
     Dosage: 5 MG , TID
     Route: 048
     Dates: start: 20131101, end: 20131104

REACTIONS (1)
  - Pulmonary hypertension [Recovered/Resolved]

NARRATIVE: CASE EVENT DATE: 2013
